FAERS Safety Report 19031405 (Version 1)
Quarter: 2021Q1

REPORT INFORMATION
  Report Type: Spontaneous
  Country: US (occurrence: US)
  Receive Date: 20210318
  Receipt Date: 20210318
  Transmission Date: 20210420
  Serious: No
  Sender: FDA-Public Use
  Company Number: None

PATIENT
  Age: 67 Year
  Sex: Male

DRUGS (5)
  1. DEXAMETHASONE. [Concomitant]
     Active Substance: DEXAMETHASONE
     Dates: end: 20210308
  2. BACTRIM DS [Concomitant]
     Active Substance: SULFAMETHOXAZOLE\TRIMETHOPRIM
  3. ONDANSETRON [Concomitant]
     Active Substance: ONDANSETRON
     Dates: end: 20210205
  4. TEMOZOLOMIDE 20MG [Suspect]
     Active Substance: TEMOZOLOMIDE
     Indication: NEOPLASM MALIGNANT
     Route: 048
     Dates: start: 20210205, end: 20210318
  5. TEMOZOLOMIDE 140MG [Suspect]
     Active Substance: TEMOZOLOMIDE
     Indication: NEOPLASM MALIGNANT
     Route: 048
     Dates: start: 20210205, end: 20210318

REACTIONS (2)
  - Platelet count decreased [None]
  - Therapy interrupted [None]

NARRATIVE: CASE EVENT DATE: 20210318
